FAERS Safety Report 18969639 (Version 5)
Quarter: 2022Q1

REPORT INFORMATION
  Report Type: Report from Study
  Country: BR (occurrence: BR)
  Receive Date: 20210304
  Receipt Date: 20220218
  Transmission Date: 20220423
  Serious: Yes (Other)
  Sender: FDA-Public Use
  Company Number: NVSC2021BR046176

PATIENT
  Age: 51 Year
  Sex: Female

DRUGS (4)
  1. KISQALI [Suspect]
     Active Substance: RIBOCICLIB
     Indication: Breast cancer
     Dosage: UNK (3 PER DAY)
     Route: 065
     Dates: start: 20200824
  2. KISQALI [Suspect]
     Active Substance: RIBOCICLIB
     Indication: Metastasis
     Dosage: 2 DF
     Route: 065
     Dates: start: 20210802
  3. KISQALI [Suspect]
     Active Substance: RIBOCICLIB
     Dosage: UNK (2)
     Route: 065
  4. KISQALI [Suspect]
     Active Substance: RIBOCICLIB
     Dosage: 2 DOSAGE FORM
     Route: 065

REACTIONS (13)
  - Immunodeficiency [Unknown]
  - Neutrophil count decreased [Unknown]
  - Immune system disorder [Unknown]
  - Illness [Recovering/Resolving]
  - Reflux gastritis [Recovered/Resolved]
  - Throat irritation [Recovered/Resolved]
  - Taste disorder [Recovered/Resolved]
  - White blood cell count decreased [Recovered/Resolved]
  - Neutrophil count decreased [Recovered/Resolved]
  - White blood cell count decreased [Recovered/Resolved]
  - White blood cell count decreased [Not Recovered/Not Resolved]
  - Stomatitis [Recovered/Resolved]
  - Stomatitis [Not Recovered/Not Resolved]

NARRATIVE: CASE EVENT DATE: 20200801
